FAERS Safety Report 8359971-3 (Version None)
Quarter: 2012Q2

REPORT INFORMATION
  Report Type: 
  Country: None (occurrence: None)
  Receive Date: 20120515
  Receipt Date: 20120503
  Transmission Date: 20120825
  Serious: Yes (Hospitalization)
  Sender: FDA-Public Use
  Company Number: AU-JNJFOC-20120312831

PATIENT
  Sex: Female
  Weight: 48 kg

DRUGS (6)
  1. INVEGA SUSTENNA [Suspect]
     Dosage: DAY 8
     Route: 030
  2. BROMOCRIPTINE MESYLATE [Suspect]
     Route: 065
  3. INVEGA SUSTENNA [Suspect]
     Indication: PSYCHOTIC DISORDER
     Dosage: DAY 1
     Route: 030
  4. INVEGA SUSTENNA [Suspect]
     Dosage: DAY 36, STRARTED ON AN UNSPECIFIED YEAR IN 01-DEC
     Route: 030
  5. BROMOCRIPTINE MESYLATE [Suspect]
     Indication: PRODUCT USED FOR UNKNOWN INDICATION
     Route: 065
  6. UNKNOWN MEDICATION [Concomitant]
     Indication: PRODUCT USED FOR UNKNOWN INDICATION
     Route: 065

REACTIONS (3)
  - WEIGHT DECREASED [None]
  - NEUROLEPTIC MALIGNANT SYNDROME [None]
  - EXTRAPYRAMIDAL DISORDER [None]
